FAERS Safety Report 14763890 (Version 1)
Quarter: 2018Q2

REPORT INFORMATION
  Report Type: Report from Study
  Country: US (occurrence: US)
  Receive Date: 20180416
  Receipt Date: 20180416
  Transmission Date: 20180711
  Serious: Yes (Other)
  Sender: FDA-Public Use
  Company Number: US-ROCHE-1889861

PATIENT

DRUGS (2)
  1. RITUXIMAB. [Suspect]
     Active Substance: RITUXIMAB
     Indication: WALDENSTROM^S MACROGLOBULINAEMIA
     Route: 042
  2. BENDAMUSTINE [Suspect]
     Active Substance: BENDAMUSTINE
     Indication: WALDENSTROM^S MACROGLOBULINAEMIA
     Route: 042

REACTIONS (11)
  - Neutropenia [Unknown]
  - Infection [Unknown]
  - Pyrexia [Unknown]
  - Lymphoma [Unknown]
  - Headache [Unknown]
  - Vomiting [Unknown]
  - Chills [Unknown]
  - Thrombocytopenia [Unknown]
  - Myelodysplastic syndrome [Unknown]
  - Hypotension [Unknown]
  - Nausea [Unknown]
